FAERS Safety Report 19912409 (Version 1)
Quarter: 2021Q4

REPORT INFORMATION
  Report Type: Spontaneous
  Country: SK (occurrence: SK)
  Receive Date: 20211004
  Receipt Date: 20211004
  Transmission Date: 20220303
  Serious: Yes (Hospitalization, Other)
  Sender: FDA-Public Use
  Company Number: SK-MYLANLABS-2021M1067540

PATIENT
  Age: 58 Year
  Sex: Female

DRUGS (6)
  1. FLUOROURACIL [Suspect]
     Active Substance: FLUOROURACIL
     Indication: Adenocarcinoma
     Dosage: CYCLE 3 FOLFOX
     Dates: start: 201702
  2. OXALIPLATIN [Suspect]
     Active Substance: OXALIPLATIN
     Indication: Adenocarcinoma
     Dosage: 2 CYCLES OF CAPOX
  3. OXALIPLATIN [Suspect]
     Active Substance: OXALIPLATIN
     Dosage: CYCLE 3 FOLFOX
     Dates: start: 201702
  4. CAPECITABINE [Suspect]
     Active Substance: CAPECITABINE
     Indication: Adenocarcinoma
     Dosage: UNK
  5. CAPECITABINE [Suspect]
     Active Substance: CAPECITABINE
     Dosage: 2 CYCLES OF CAPOX
  6. LEUCOVORIN [Suspect]
     Active Substance: LEUCOVORIN
     Indication: Adenocarcinoma
     Dosage: CYCLE 3 FOLFOX
     Dates: start: 201702

REACTIONS (5)
  - Ileus [Unknown]
  - Metabolic disorder [Unknown]
  - Gastrointestinal toxicity [Unknown]
  - Polyneuropathy [Unknown]
  - Skin toxicity [Recovered/Resolved]
